FAERS Safety Report 11467724 (Version 2)
Quarter: 2015Q3

REPORT INFORMATION
  Report Type: Spontaneous
  Country: CN (occurrence: CN)
  Receive Date: 20150908
  Receipt Date: 20150908
  Transmission Date: 20151125
  Serious: Yes (Hospitalization, Other)
  Sender: FDA-Public Use
  Company Number: PHHY2015CN106622

PATIENT
  Age: 50 Year
  Sex: Female

DRUGS (4)
  1. ATORVASTATIN [Suspect]
     Active Substance: ATORVASTATIN
     Indication: LIPIDS INCREASED
     Dosage: 10 MG, QD
     Route: 048
  2. CARBAMAZEPINE. [Interacting]
     Active Substance: CARBAMAZEPINE
     Indication: SEIZURE
     Dosage: 0.05 G, TID
     Route: 048
     Dates: start: 20130124
  3. MITOXANTRONE [Concomitant]
     Active Substance: MITOXANTRONE HYDROCHLORIDE
     Indication: NEUROMYELITIS OPTICA
     Route: 065
  4. CARBAMAZEPINE. [Interacting]
     Active Substance: CARBAMAZEPINE
     Indication: MUSCLE SPASMS
     Dosage: 0.05 G (MORNING), 0.1G (NOON), 0.05G (EVENING)
     Route: 048
     Dates: start: 201304

REACTIONS (11)
  - Dermatitis exfoliative [Recovering/Resolving]
  - Liver injury [Unknown]
  - Skin swelling [Recovering/Resolving]
  - Blister [Recovering/Resolving]
  - Swelling face [Recovering/Resolving]
  - Rash [Unknown]
  - Skin exfoliation [Recovering/Resolving]
  - Pruritus [Recovering/Resolving]
  - Drug interaction [Unknown]
  - Erythema [Recovering/Resolving]
  - Muscle spasms [Unknown]
